FAERS Safety Report 6940501-5 (Version None)
Quarter: 2010Q3

REPORT INFORMATION
  Report Type: 
  Country: None (occurrence: None)
  Receive Date: 20100820
  Receipt Date: 20100811
  Transmission Date: 20110219
  Serious: Yes (Death)
  Sender: FDA-Public Use
  Company Number: DKLU1064086

PATIENT
  Age: 4 Year
  Sex: Female
  Weight: 18.6 kg

DRUGS (5)
  1. SABRIL [Suspect]
     Indication: LENNOX-GASTAUT SYNDROME
     Dosage: 1250 MG, MILLIGRAM(S), 2 IN 1 D, ORAL
     Route: 048
  2. VALPROATE SODIUM [Concomitant]
  3. KEPPRA (LEVETIRACETAM) (100 MG/ML) [Concomitant]
  4. BENZEL (RUFINAMIDE) (200 MG, TABLET) [Concomitant]
  5. DIAZEPAM (DIAZEPAM) (1 MG/ML) [Concomitant]

REACTIONS (4)
  - CONVULSION [None]
  - PNEUMONIA [None]
  - RESPIRATORY FAILURE [None]
  - SLEEP DISORDER [None]
